FAERS Safety Report 6178869-2 (Version None)
Quarter: 2009Q2

REPORT INFORMATION
  Report Type: 
  Country: None (occurrence: None)
  Receive Date: 20090505
  Receipt Date: 20090421
  Transmission Date: 20091009
  Serious: Yes (Other)
  Sender: FDA-Public Use
  Company Number: IN-RANBAXY-2009R1-23538

PATIENT

DRUGS (1)
  1. CIPROFLOXACIN [Suspect]
     Indication: DIARRHOEA
     Dosage: 500 MG, UNK
     Route: 048

REACTIONS (3)
  - NASAL CONGESTION [None]
  - RASH [None]
  - RESPIRATORY DISTRESS [None]
